FAERS Safety Report 4471059-0 (Version None)
Quarter: 2004Q4

REPORT INFORMATION
  Report Type: 
  Country: None (occurrence: None)
  Receive Date: 20041011
  Receipt Date: 20040909
  Transmission Date: 20050328
  Serious: Yes (Other)
  Sender: FDA-Public Use
  Company Number: GB-BRISTOL-MYERS SQUIBB COMPANY-12696498

PATIENT
  Age: 46 Year
  Sex: Female

DRUGS (1)
  1. FLUPHENAZINE DECANOATE [Suspect]
     Indication: SCHIZOPHRENIA
     Route: 030
     Dates: start: 19690101, end: 19940101

REACTIONS (1)
  - MACULOPATHY [None]
